FAERS Safety Report 11061095 (Version 2)
Quarter: 2015Q2

REPORT INFORMATION
  Report Type: Report from Study
  Country: GB (occurrence: GB)
  Receive Date: 20150424
  Receipt Date: 20150522
  Transmission Date: 20150821
  Serious: Yes (Hospitalization)
  Sender: FDA-Public Use
  Company Number: GB-009507513-1504GBR020849

PATIENT
  Age: 70 Year
  Sex: Female

DRUGS (14)
  1. OLAPARIB [Suspect]
     Active Substance: OLAPARIB
     Indication: BREAST CANCER
     Dosage: 300 MG, 2 IN 1 D
     Route: 048
     Dates: start: 20141212, end: 20141215
  2. CANDESARTAN [Concomitant]
     Active Substance: CANDESARTAN
     Indication: HYPERTENSION
     Dosage: 2 MG, 1 IN 1 D
     Route: 048
  3. AMOXICILLIN (+) CLAVULANATE POTASSIUM [Concomitant]
     Active Substance: AMOXICILLIN\CLAVULANATE POTASSIUM
     Dosage: TOTAL DAILY DOSE  5 ML
     Route: 048
     Dates: start: 20141224, end: 20141230
  4. OLAPARIB [Suspect]
     Active Substance: OLAPARIB
     Dosage: 300 MG, 2 IN 1 D
     Route: 048
     Dates: start: 20150128
  5. COLOFAC [Concomitant]
     Active Substance: MEBEVERINE HYDROCHLORIDE
     Indication: DIVERTICULUM
     Dosage: 100 MG, 2 IN 1 D
     Route: 048
  6. VITAMINS (UNSPECIFIED) [Concomitant]
     Active Substance: VITAMINS
     Indication: VITAMIN SUPPLEMENTATION
     Dosage: 1 DOSAGE FORMS, 1 IN 1 D
     Route: 048
  7. ESOMEPRAZOLE MAGNESIUM. [Concomitant]
     Active Substance: ESOMEPRAZOLE MAGNESIUM
     Indication: GASTROOESOPHAGEAL REFLUX DISEASE
     Dosage: 20 MG, 1 IN 1 D
     Route: 048
  8. ATORVASTATIN [Concomitant]
     Active Substance: ATORVASTATIN
     Indication: HYPERCHOLESTEROLAEMIA
     Dosage: 10 MG, 1 IN 1 D
     Route: 048
  9. LETROZOLE. [Suspect]
     Active Substance: LETROZOLE
     Indication: BREAST CANCER
     Dosage: 2.5 MG, 1 IN 1 D
     Route: 065
     Dates: start: 20141222, end: 20150202
  10. AMOXICILLIN (+) CLAVULANATE POTASSIUM [Concomitant]
     Active Substance: AMOXICILLIN\CLAVULANATE POTASSIUM
     Indication: LOWER RESPIRATORY TRACT INFECTION
     Dosage: TOTAL DAILY DOSE 625 MG
     Route: 048
     Dates: start: 20150115
  11. OLAPARIB [Suspect]
     Active Substance: OLAPARIB
     Dosage: 300 MG, 1 IN 1 D
     Route: 048
     Dates: start: 20141216, end: 20141216
  12. AMLODIPINE [Concomitant]
     Active Substance: AMLODIPINE BESYLATE
     Indication: HYPERTENSION
     Dosage: 5 MG, 1 IN 1 D
     Route: 048
  13. DIFFLAM (BENZYDAMINE HYDROCHLORIDE) [Concomitant]
     Indication: STOMATITIS
     Dosage: TOTAL DAILY DOSE 10 ML
     Route: 048
     Dates: start: 201410
  14. DEXAMETHASONE. [Suspect]
     Active Substance: DEXAMETHASONE
     Indication: SUPERIOR VENA CAVA OCCLUSION
     Dosage: 8 MG, UNKNOWN
     Route: 048
     Dates: start: 20150207, end: 20150221

REACTIONS (2)
  - Cognitive disorder [Recovered/Resolved]
  - Off label use [Recovered/Resolved]

NARRATIVE: CASE EVENT DATE: 20150207
